FAERS Safety Report 5135561-0 (Version None)
Quarter: 2006Q4

REPORT INFORMATION
  Report Type: 
  Country: None (occurrence: None)
  Receive Date: 20061020
  Receipt Date: 20061009
  Transmission Date: 20070319
  Serious: Yes (Other)
  Sender: FDA-Public Use
  Company Number: 2006124409

PATIENT
  Sex: Female

DRUGS (3)
  1. LIPITOR [Suspect]
  2. LESCOL [Suspect]
     Indication: BLOOD CHOLESTEROL
  3. NORVASC [Concomitant]

REACTIONS (3)
  - ABDOMINAL PAIN [None]
  - MUSCLE ATROPHY [None]
  - PAIN IN EXTREMITY [None]
